FAERS Safety Report 5152420-8 (Version None)
Quarter: 2006Q4

REPORT INFORMATION
  Report Type: 
  Country: None (occurrence: None)
  Receive Date: 20061116
  Receipt Date: 20060824
  Transmission Date: 20070319
  Serious: Yes (Death, Hospitalization, Other)
  Sender: FDA-Public Use
  Company Number: US-ELI_LILLY_AND_COMPANY-US200608005351

PATIENT
  Age: 44 Year
  Sex: Male
  Weight: 129.25 kg

DRUGS (1)
  1. ZYPREXA [Suspect]
     Indication: SCHIZOPHRENIA, PARANOID TYPE
     Route: 048
     Dates: start: 19800101, end: 19970101

REACTIONS (7)
  - COMA [None]
  - DEATH [None]
  - DIABETES MELLITUS [None]
  - DIABETIC COMA [None]
  - HYPOGLYCAEMIA [None]
  - PANCREATECTOMY [None]
  - PANCREATITIS [None]
